FAERS Safety Report 7874697 (Version 4)
Quarter: 2020Q3

REPORT INFORMATION
  Report Type: Spontaneous
  Country: ES (occurrence: ES)
  Receive Date: 20110328
  Receipt Date: 20200703
  Transmission Date: 20201103
  Serious: Yes (Death)
  Sender: FDA-Public Use
  Company Number: PHHY2011ES23987

PATIENT
  Age: 33 Year
  Sex: Female

DRUGS (8)
  1. POSACONAZOLE [Interacting]
     Active Substance: POSACONAZOLE
     Indication: ACUTE PROMYELOCYTIC LEUKAEMIA
     Dosage: UNK
     Route: 065
  2. DEXAMETHASONE. [Concomitant]
     Active Substance: DEXAMETHASONE
     Indication: PROPHYLAXIS
     Dosage: UNK
     Route: 065
  3. TRETINOIN. [Interacting]
     Active Substance: TRETINOIN
     Dosage: 45 MG/M2 PER DAY IN TWO SPLIT DOSES
     Route: 048
  4. DEXAMETHASONE. [Concomitant]
     Active Substance: DEXAMETHASONE
     Dosage: UNK
     Route: 065
  5. POSACONAZOLE [Interacting]
     Active Substance: POSACONAZOLE
     Indication: ANTIFUNGAL PROPHYLAXIS
     Dosage: UNK
     Route: 065
  6. TRETINOIN. [Interacting]
     Active Substance: TRETINOIN
     Indication: ACUTE PROMYELOCYTIC LEUKAEMIA
     Dosage: UNK
     Route: 065
  7. FLUCONAZOLE. [Suspect]
     Active Substance: FLUCONAZOLE
     Indication: ANTIFUNGAL PROPHYLAXIS
     Dosage: UNK
     Route: 065
  8. IDARUBICIN [Concomitant]
     Active Substance: IDARUBICIN
     Indication: ACUTE PROMYELOCYTIC LEUKAEMIA
     Dosage: UNK
     Route: 041

REACTIONS (14)
  - Gastrointestinal toxicity [Fatal]
  - Oesophageal hypomotility [Fatal]
  - Abdominal distension [Fatal]
  - Drug interaction [Fatal]
  - Metabolic acidosis [Fatal]
  - Abdominal pain [Fatal]
  - Multiple organ dysfunction syndrome [Fatal]
  - Hepatotoxicity [Fatal]
  - Diarrhoea [Fatal]
  - Septic shock [Fatal]
  - Enterobacter test positive [Fatal]
  - Toxicity to various agents [Fatal]
  - Blood bilirubin increased [Fatal]
  - Dyspnoea [Fatal]
